FAERS Safety Report 11606148 (Version 2)
Quarter: 2015Q4

REPORT INFORMATION
  Report Type: Report from Study
  Country: US (occurrence: US)
  Receive Date: 20151007
  Receipt Date: 20151109
  Transmission Date: 20160304
  Serious: Yes (Hospitalization)
  Sender: FDA-Public Use
  Company Number: US-ACTELION-A-US2015-124838

PATIENT
  Age: 72 Year
  Sex: Male

DRUGS (1)
  1. MACITENTAN [Suspect]
     Active Substance: MACITENTAN
     Indication: PULMONARY ARTERIAL HYPERTENSION
     Dosage: 10 MG, QD
     Route: 048
     Dates: start: 20150909

REACTIONS (5)
  - Pneumonia [Unknown]
  - Cough [Unknown]
  - Bronchitis [Unknown]
  - Dyspnoea [Unknown]
  - Influenza like illness [Unknown]
